FAERS Safety Report 6993416-0 (Version None)
Quarter: 2010Q3

REPORT INFORMATION
  Report Type: 
  Country: None (occurrence: None)
  Receive Date: 20100917
  Receipt Date: 20100526
  Transmission Date: 20110219
  Serious: No
  Sender: FDA-Public Use
  Company Number: US-ASTRAZENECA-2010SE24137

PATIENT
  Age: 85 Year
  Sex: Female
  Weight: 54.4 kg

DRUGS (8)
  1. SEROQUEL XR [Suspect]
     Indication: SLEEP DISORDER
     Route: 048
     Dates: start: 20100525
  2. DIOVAN [Concomitant]
     Indication: HYPERTENSION
  3. NADOLOL [Concomitant]
     Indication: HYPERTENSION
  4. ZOLPIDEM [Concomitant]
     Indication: SLEEP DISORDER
  5. LIPITOR [Concomitant]
     Indication: HYPERCHOLESTEROLAEMIA
  6. PROTONIX [Concomitant]
     Indication: GASTROOESOPHAGEAL REFLUX DISEASE
  7. SYNTHROID [Concomitant]
     Indication: THYROID DISORDER
  8. CYMBALTA [Concomitant]
     Indication: DEPRESSION

REACTIONS (2)
  - DRY MOUTH [None]
  - HEADACHE [None]
